APPROVED DRUG PRODUCT: CICLOPIROX
Active Ingredient: CICLOPIROX
Strength: 1%
Dosage Form/Route: SHAMPOO;TOPICAL
Application: A209975 | Product #001 | TE Code: AT
Applicant: ENCUBE ETHICALS PRIVATE LTD
Approved: Apr 5, 2018 | RLD: No | RS: No | Type: RX